FAERS Safety Report 4859853-5 (Version None)
Quarter: 2005Q4

REPORT INFORMATION
  Report Type: 
  Country: None (occurrence: None)
  Receive Date: 20051215
  Receipt Date: 20051202
  Transmission Date: 20060501
  Serious: Yes (Death)
  Sender: FDA-Public Use
  Company Number: 2005S1010531

PATIENT
  Age: 56 Year
  Sex: Female

DRUGS (10)
  1. CLOZAPINE [Suspect]
     Indication: SCHIZOPHRENIA
     Dosage: 100 MG; QAM; ORAL  250 MG; HS; ORAL
     Route: 048
     Dates: start: 20030115, end: 20050901
  2. CLOZAPINE [Suspect]
     Indication: SCHIZOPHRENIA
     Dosage: 100 MG; QAM; ORAL  250 MG; HS; ORAL
     Route: 048
     Dates: start: 20030115, end: 20050901
  3. SERTRALINE HCL [Concomitant]
  4. HYDROCHLORIDE [Concomitant]
  5. ZONISAMIDE [Concomitant]
  6. ALPRAZOLAM [Concomitant]
  7. LISINOPRIL [Concomitant]
  8. LEVOTHYROXINE SODIUM [Concomitant]
  9. DESMOPRESSIN [Concomitant]
  10. ATORVASTATIN [Concomitant]

REACTIONS (2)
  - DYSPNOEA [None]
  - GASTRIC CANCER [None]
